FAERS Safety Report 12539529 (Version 1)
Quarter: 2016Q3

REPORT INFORMATION
  Report Type: Spontaneous
  Country: US (occurrence: None)
  Receive Date: 20160707
  Receipt Date: 20160707
  Transmission Date: 20161109
  Serious: No
  Sender: FDA-Public Use
  Company Number: None

PATIENT
  Sex: Female

DRUGS (3)
  1. INVOKANA [Suspect]
     Active Substance: CANAGLIFLOZIN
  2. HUMALOG [Suspect]
     Active Substance: INSULIN LISPRO
  3. FENOFIBRIC [Suspect]
     Active Substance: FENOFIBRIC ACID

REACTIONS (1)
  - Peripheral swelling [None]
